FAERS Safety Report 20764151 (Version 1)
Quarter: 2022Q2

REPORT INFORMATION
  Report Type: Spontaneous
  Country: US (occurrence: None)
  Receive Date: 20220428
  Receipt Date: 20220428
  Transmission Date: 20220721
  Serious: Yes (Hospitalization, Other)
  Sender: FDA-Public Use
  Company Number: None

PATIENT
  Age: 51 Year
  Sex: Male

DRUGS (3)
  1. TICAGRELOR [Suspect]
     Active Substance: TICAGRELOR
     Indication: Catheterisation cardiac
     Dosage: OTHER FREQUENCY : ONCE;?
     Route: 048
     Dates: start: 20220425, end: 20220425
  2. ASPIRIN [Concomitant]
     Active Substance: ASPIRIN
     Dates: start: 20220425
  3. ATORVASTATIN [Concomitant]
     Active Substance: ATORVASTATIN
     Dates: start: 20220425

REACTIONS (4)
  - Swelling face [None]
  - Eye swelling [None]
  - Rash [None]
  - Therapy cessation [None]

NARRATIVE: CASE EVENT DATE: 20220425
